FAERS Safety Report 9450377 (Version 1)
Quarter: 2013Q3

REPORT INFORMATION
  Report Type: Spontaneous
  Country: IT (occurrence: None)
  Receive Date: 20130807
  Receipt Date: 20130807
  Transmission Date: 20140515
  Serious: Yes (Hospitalization)
  Sender: FDA-Public Use
  Company Number: AUR-APL-2013-06560

PATIENT
  Sex: Female

DRUGS (1)
  1. AMOXICILLIN+CLAVULANIC ACID [Suspect]
     Indication: PRODUCT USED FOR UNKNOWN INDICATION

REACTIONS (3)
  - Anaemia [None]
  - Blood bilirubin increased [None]
  - Rash [None]
